FAERS Safety Report 5883238-6 (Version None)
Quarter: 2008Q3

REPORT INFORMATION
  Report Type: 
  Country: None (occurrence: None)
  Receive Date: 20080915
  Receipt Date: 20080905
  Transmission Date: 20090109
  Serious: Yes (Other)
  Sender: FDA-Public Use
  Company Number: SE-JNJFOC-20080805261

PATIENT
  Age: 60 Year
  Sex: Female

DRUGS (7)
  1. HALDOL [Suspect]
     Indication: REACTIVE PSYCHOSIS
     Route: 065
  2. DEXOFEN [Concomitant]
  3. DIAZEPAM [Concomitant]
  4. COZAAR [Concomitant]
  5. HALCION [Concomitant]
  6. ALVEDON [Concomitant]
  7. SIMVASTATIN [Concomitant]

REACTIONS (2)
  - BLEPHAROSPASM [None]
  - DYSTONIA [None]
